FAERS Safety Report 7901412-1 (Version None)
Quarter: 2011Q4

REPORT INFORMATION
  Report Type: 
  Country: None (occurrence: None)
  Receive Date: 20111108
  Receipt Date: 20111024
  Transmission Date: 20120403
  Serious: Yes (Other)
  Sender: FDA-Public Use
  Company Number: JP-SANOFI-AVENTIS-2011SA070061

PATIENT

DRUGS (1)
  1. OXALIPLATIN [Suspect]
     Indication: COLORECTAL CANCER
     Route: 065

REACTIONS (12)
  - DYSPNOEA [None]
  - HYPOTENSION [None]
  - PRURITUS [None]
  - CARDIAC ARREST [None]
  - VOMITING [None]
  - RASH [None]
  - HYPERSENSITIVITY [None]
  - ECZEMA [None]
  - FLUSHING [None]
  - ALTERED STATE OF CONSCIOUSNESS [None]
  - NAUSEA [None]
  - HYPERHIDROSIS [None]
